FAERS Safety Report 4593783-1 (Version None)
Quarter: 2005Q1

REPORT INFORMATION
  Report Type: 
  Country: None (occurrence: None)
  Receive Date: 20050224
  Receipt Date: 20041227
  Transmission Date: 20050727
  Serious: No
  Sender: FDA-Public Use
  Company Number: US-BRISTOL-MYERS SQUIBB COMPANY-12811246

PATIENT
  Age: 65 Year
  Sex: Female
  Weight: 87 kg

DRUGS (3)
  1. EXCEDRIN (MIGRAINE) [Suspect]
     Indication: ARTHRALGIA
     Route: 048
     Dates: start: 20040101
  2. TYLENOL (CAPLET) [Suspect]
     Indication: HEADACHE
  3. ALEVE [Suspect]
     Indication: HEADACHE

REACTIONS (1)
  - HEADACHE [None]
